FAERS Safety Report 15337562 (Version 2)
Quarter: 2022Q3

REPORT INFORMATION
  Report Type: Spontaneous
  Country: DE (occurrence: DE)
  Receive Date: 20180831
  Receipt Date: 20220807
  Transmission Date: 20221027
  Serious: No
  Sender: FDA-Public Use
  Company Number: DE-01054554290-2010SP021639

PATIENT
  Sex: Female
  Weight: 70 kg

DRUGS (4)
  1. IMPLANON [Suspect]
     Active Substance: ETONOGESTREL
     Indication: Product used for unknown indication
     Dosage: 1 DF
  2. IMPLANON [Suspect]
     Active Substance: ETONOGESTREL
     Dosage: 1 DF, UNK
     Dates: start: 20070621
  3. DOXYCYCLINE [Concomitant]
     Active Substance: DOXYCYCLINE
     Indication: Influenza like illness
     Dosage: 200 MG, QD (ALSO REPORTED AS 100 MG, BID)
     Dates: start: 20100304, end: 20100313
  4. AMPICILLIN [Concomitant]
     Active Substance: AMPICILLIN
     Indication: Influenza like illness
     Dosage: UNK UNK, BID
     Dates: start: 20100304, end: 20100311

REACTIONS (1)
  - Pregnancy with implant contraceptive [Recovered/Resolved]
